FAERS Safety Report 7897903-2 (Version None)
Quarter: 2011Q4

REPORT INFORMATION
  Report Type: 
  Country: None (occurrence: None)
  Receive Date: 20111107
  Receipt Date: 20111028
  Transmission Date: 20120403
  Serious: Yes (Death, Life-Threatening, Hospitalization, Other)
  Sender: FDA-Public Use
  Company Number: FR-GENZYME-CLOF-1001794

PATIENT
  Sex: Female
  Weight: 53 kg

DRUGS (6)
  1. ETOPOPHOS PRESERVATIVE FREE [Suspect]
     Indication: ACUTE LYMPHOCYTIC LEUKAEMIA
     Dosage: 155 MG, QD
     Route: 065
     Dates: start: 20110914, end: 20110918
  2. BACTRIM [Concomitant]
     Indication: PRODUCT USED FOR UNKNOWN INDICATION
     Dosage: 800 MG, QD
     Route: 042
     Dates: start: 20110914, end: 20111010
  3. CYCLOPHOSPHAMIDE [Suspect]
     Indication: ACUTE LYMPHOCYTIC LEUKAEMIA
     Dosage: 682 MG, QD
     Route: 042
     Dates: start: 20110914, end: 20110918
  4. CLOFARABINE [Suspect]
     Indication: ACUTE LYMPHOCYTIC LEUKAEMIA
     Dosage: 60 MG, QDX5
     Route: 042
     Dates: start: 20110914, end: 20110918
  5. AMIKACIN [Concomitant]
     Indication: PYREXIA
     Dosage: 1000 MG, QD
     Route: 042
     Dates: start: 20110916, end: 20110920
  6. MORPHINE [Concomitant]
     Indication: PAIN
     Dosage: UNK
     Route: 065
     Dates: start: 20110916

REACTIONS (3)
  - CANDIDIASIS [None]
  - GASTROINTESTINAL HAEMORRHAGE [None]
  - SEPTIC SHOCK [None]
